FAERS Safety Report 23045557 (Version 2)
Quarter: 2023Q4

REPORT INFORMATION
  Report Type: Spontaneous
  Country: US (occurrence: US)
  Receive Date: 20231009
  Receipt Date: 20231020
  Transmission Date: 20240109
  Serious: Yes (Life-Threatening, Hospitalization, Other)
  Sender: FDA-Public Use
  Company Number: US-PFIZER INC-PV202300165943

PATIENT
  Age: 75 Year
  Sex: Male
  Weight: 73 kg

DRUGS (4)
  1. BUPIVACAINE HYDROCHLORIDE [Suspect]
     Active Substance: BUPIVACAINE HYDROCHLORIDE
     Indication: Knee arthroplasty
     Dosage: 300 MG,  (40 ML OF A 0.75% SOLUTION)  DILUTED IN 100 ML, (HIGHDOSE(4.1MG/KG))
     Route: 052
  2. KETOROLAC [Concomitant]
     Active Substance: KETOROLAC TROMETHAMINE
     Indication: Knee arthroplasty
     Dosage: 60 MG
     Route: 052
  3. MORPHINE [Concomitant]
     Active Substance: MORPHINE
     Indication: Knee arthroplasty
     Dosage: 4 MG
     Route: 052
  4. SODIUM CHLORIDE [Concomitant]
     Active Substance: SODIUM CHLORIDE
     Indication: Knee arthroplasty
     Dosage: 0.9 % (100 ML)

REACTIONS (3)
  - Bradycardia [Recovered/Resolved]
  - Toxicity to various agents [Unknown]
  - Off label use [Unknown]
